FAERS Safety Report 8335185-8 (Version None)
Quarter: 2012Q2

REPORT INFORMATION
  Report Type: 
  Country: None (occurrence: None)
  Receive Date: 20120503
  Receipt Date: 20120418
  Transmission Date: 20120825
  Serious: Yes (Other)
  Sender: FDA-Public Use
  Company Number: JP-JNJFOC-20110805995

PATIENT
  Sex: Female
  Weight: 49 kg

DRUGS (5)
  1. TRUVADA [Suspect]
     Indication: HIV INFECTION
     Route: 048
     Dates: start: 20070401, end: 20110612
  2. TRUVADA [Suspect]
     Route: 048
     Dates: start: 20110613
  3. PREDNISOLONE ACETATE [Concomitant]
     Indication: RASH
     Route: 048
     Dates: start: 20100624
  4. INTELENCE [Suspect]
     Indication: HIV INFECTION
     Route: 048
     Dates: start: 20110613
  5. ISENTRESS [Suspect]
     Indication: HIV INFECTION
     Route: 048
     Dates: start: 20110613

REACTIONS (6)
  - GASTRIC ULCER [None]
  - BACK PAIN [None]
  - LIVER DISORDER [None]
  - RASH [None]
  - ORAL CANDIDIASIS [None]
  - INSOMNIA [None]
